FAERS Safety Report 24752419 (Version 2)
Quarter: 2025Q1

REPORT INFORMATION
  Report Type: Spontaneous
  Country: UY (occurrence: UY)
  Receive Date: 20241219
  Receipt Date: 20250121
  Transmission Date: 20250408
  Serious: Yes (Other)
  Sender: ROCHE
  Company Number: UY-ROCHE-10000131755

PATIENT
  Age: 70 Year
  Sex: Female

DRUGS (4)
  1. ACTEMRA [Suspect]
     Active Substance: TOCILIZUMAB
     Indication: Rheumatoid arthritis
     Dosage: ONCE A WEEK, EVERY MONDAY)
     Route: 058
     Dates: start: 2021
  2. LEVOTHYROXINE [Concomitant]
     Active Substance: LEVOTHYROXINE
     Indication: Product used for unknown indication
  3. DIAPRESAN [Concomitant]
     Indication: Hypertension
  4. METHOTREXATE [Concomitant]
     Active Substance: METHOTREXATE

REACTIONS (11)
  - Urticaria [Not Recovered/Not Resolved]
  - Wound [Not Recovered/Not Resolved]
  - Erythema [Unknown]
  - Sinus congestion [Unknown]
  - Sensitive skin [Unknown]
  - Haematoma [Unknown]
  - Cerebrovascular accident [Unknown]
  - Panic attack [Recovered/Resolved]
  - Dizziness [Not Recovered/Not Resolved]
  - Pneumonia [Unknown]
  - Influenza [Unknown]

NARRATIVE: CASE EVENT DATE: 20230101
